FAERS Safety Report 7297757-1 (Version None)
Quarter: 2011Q1

REPORT INFORMATION
  Report Type: 
  Country: None (occurrence: None)
  Receive Date: 20110217
  Receipt Date: 20110215
  Transmission Date: 20110831
  Serious: Yes (Life-Threatening, Hospitalization)
  Sender: FDA-Public Use
  Company Number: CH-SP-2011-00490

PATIENT
  Sex: Male

DRUGS (1)
  1. IMMUCYST [Suspect]
     Indication: NEOPLASM MALIGNANT
     Dosage: NOT REPORTED
     Route: 043
     Dates: start: 20101201, end: 20101201

REACTIONS (3)
  - BOVINE TUBERCULOSIS [None]
  - LUNG DISORDER [None]
  - GRANULOMATOUS LIVER DISEASE [None]
